FAERS Safety Report 8310458-3 (Version None)
Quarter: 2012Q2

REPORT INFORMATION
  Report Type: 
  Country: None (occurrence: None)
  Receive Date: 20120425
  Receipt Date: 20120420
  Transmission Date: 20120825
  Serious: Yes (Hospitalization)
  Sender: FDA-Public Use
  Company Number: TH-ELI_LILLY_AND_COMPANY-TH201006001898

PATIENT
  Sex: Female
  Weight: 55 kg

DRUGS (11)
  1. CARVEDILOL [Concomitant]
     Indication: PROPHYLAXIS
     Dosage: UNK
     Dates: start: 20100427, end: 20100603
  2. FUROSEMIDE [Concomitant]
     Dates: start: 20100424, end: 20100602
  3. SPIRONOLACTONE [Concomitant]
     Indication: PROPHYLAXIS
     Dates: start: 20100527, end: 20100602
  4. SENOKOT [Concomitant]
     Indication: PROPHYLAXIS
     Dates: start: 20100424, end: 20100602
  5. FERROUS FUMARATE W/FOLIC ACID [Concomitant]
     Indication: PROPHYLAXIS
     Dates: start: 20100523, end: 20100606
  6. PYRIDOXINE HCL [Concomitant]
     Indication: PROPHYLAXIS
     Dates: start: 20100523, end: 20100606
  7. METFORMIN HCL [Concomitant]
     Indication: DIABETES MELLITUS
     Dosage: UNK
     Dates: start: 20100512
  8. ANAPRIL [Concomitant]
     Indication: PROPHYLAXIS
     Dates: start: 20100427, end: 20100623
  9. LIPITOR [Concomitant]
     Indication: PROPHYLAXIS
     Dates: start: 20100424, end: 20100606
  10. PRASUGREL HYDROCHLORIDE [Suspect]
     Indication: ACUTE CORONARY SYNDROME
     Dosage: UNK, UNK
     Route: 048
     Dates: start: 20100525, end: 20100601
  11. CLOPIDOGREL [Concomitant]
     Indication: ACUTE CORONARY SYNDROME
     Dates: start: 20100525, end: 20100602

REACTIONS (1)
  - DUODENAL ULCER [None]
